FAERS Safety Report 16548735 (Version 2)
Quarter: 2020Q4

REPORT INFORMATION
  Report Type: Report from Study
  Country: US (occurrence: US)
  Receive Date: 20190709
  Receipt Date: 20201211
  Transmission Date: 20210113
  Serious: Yes (Hospitalization, Other)
  Sender: FDA-Public Use
  Company Number: US-GILEAD-2019-0417279

PATIENT
  Age: 53 Year
  Sex: Male

DRUGS (4)
  1. SOFOSBUVIR [Suspect]
     Active Substance: SOFOSBUVIR
     Indication: CHRONIC HEPATITIS C
     Dosage: UNK
     Route: 065
     Dates: start: 20140221
  2. PEGASYS [Suspect]
     Active Substance: PEGINTERFERON ALFA-2A
     Indication: CHRONIC HEPATITIS C
     Route: 058
     Dates: start: 20140221
  3. RIBASPHERE [Suspect]
     Active Substance: RIBAVIRIN
     Indication: CHRONIC HEPATITIS C
     Dosage: 1200 MG, ORAL
     Route: 048
     Dates: start: 20140221
  4. TRIAMCINOLONE ACETONIDE. [Concomitant]
     Active Substance: TRIAMCINOLONE ACETONIDE
     Route: 065

REACTIONS (27)
  - Rash [Unknown]
  - Haematochezia [Unknown]
  - Dysuria [Unknown]
  - Dizziness [Unknown]
  - Fatigue [Unknown]
  - Prostatic disorder [Unknown]
  - Feeling abnormal [Unknown]
  - Weight decreased [Unknown]
  - Illness [Unknown]
  - Dry mouth [Unknown]
  - Abdominal discomfort [Unknown]
  - Nausea [Unknown]
  - Arthralgia [Unknown]
  - Pruritus [Unknown]
  - Loss of consciousness [Unknown]
  - Chest pain [Unknown]
  - Oral mucosal blistering [Unknown]
  - Dehydration [Unknown]
  - Memory impairment [Unknown]
  - Asthenia [Unknown]
  - Dry skin [Unknown]
  - Decreased appetite [Unknown]
  - Constipation [Unknown]
  - Depression [Unknown]
  - Diarrhoea [Unknown]
  - Lip blister [Unknown]
  - Disturbance in attention [Unknown]
